FAERS Safety Report 13621159 (Version 1)
Quarter: 2017Q2

REPORT INFORMATION
  Report Type: Spontaneous
  Country: US (occurrence: US)
  Receive Date: 20170607
  Receipt Date: 20170607
  Transmission Date: 20170830
  Serious: Yes (Other)
  Sender: FDA-Public Use
  Company Number: US-BIOGEN-2017BI00412699

PATIENT
  Age: 40 Year
  Sex: Female

DRUGS (9)
  1. COUGH DM [Concomitant]
     Active Substance: DEXTROMETHORPHAN HYDROBROMIDE
     Indication: PRODUCT USED FOR UNKNOWN INDICATION
     Route: 065
  2. NORA BE [Concomitant]
     Active Substance: NORETHINDRONE
     Indication: PRODUCT USED FOR UNKNOWN INDICATION
     Route: 065
  3. FLAXSEED [Concomitant]
     Active Substance: FLAX SEED
     Indication: PRODUCT USED FOR UNKNOWN INDICATION
     Route: 065
  4. TECFIDERA [Suspect]
     Active Substance: DIMETHYL FUMARATE
     Indication: PRODUCT USED FOR UNKNOWN INDICATION
     Route: 065
  5. VITAMIN D3 [Concomitant]
     Active Substance: CHOLECALCIFEROL
     Indication: PRODUCT USED FOR UNKNOWN INDICATION
     Route: 065
  6. AMPYRA [Concomitant]
     Active Substance: DALFAMPRIDINE
     Indication: MULTIPLE SCLEROSIS
     Route: 048
     Dates: start: 20160827
  7. VITAMIN B [Concomitant]
     Active Substance: VITAMIN B
     Indication: PRODUCT USED FOR UNKNOWN INDICATION
     Route: 065
  8. CELEBREX [Concomitant]
     Active Substance: CELECOXIB
     Indication: PRODUCT USED FOR UNKNOWN INDICATION
     Route: 065
  9. LYRICA [Concomitant]
     Active Substance: PREGABALIN
     Indication: PRODUCT USED FOR UNKNOWN INDICATION
     Route: 065

REACTIONS (3)
  - Hip fracture [Unknown]
  - Pain [Unknown]
  - Fall [Recovered/Resolved]

NARRATIVE: CASE EVENT DATE: 20170505
